FAERS Safety Report 10899988 (Version 1)
Quarter: 2015Q1

REPORT INFORMATION
  Report Type: Report from Study
  Country: US (occurrence: US)
  Receive Date: 20150310
  Receipt Date: 20150310
  Transmission Date: 20150721
  Serious: Yes (Other)
  Sender: FDA-Public Use
  Company Number: US-ROCHE-1549295

PATIENT
  Age: 51 Year
  Sex: Female

DRUGS (1)
  1. OMALIZUMAB [Suspect]
     Active Substance: OMALIZUMAB
     Indication: IDIOPATHIC URTICARIA
     Route: 065
     Dates: start: 20150304

REACTIONS (3)
  - Heart rate increased [Recovered/Resolved]
  - Injection site pruritus [Unknown]
  - Nausea [Unknown]

NARRATIVE: CASE EVENT DATE: 20150304
